FAERS Safety Report 12355163 (Version 1)
Quarter: 2016Q2

REPORT INFORMATION
  Report Type: Spontaneous
  Country: US (occurrence: None)
  Receive Date: 20160510
  Receipt Date: 20160510
  Transmission Date: 20160815
  Serious: No
  Sender: FDA-Public Use
  Company Number: None

PATIENT
  Age: 45 Year
  Sex: Female

DRUGS (4)
  1. ENBREL [Suspect]
     Active Substance: ETANERCEPT
     Indication: RHEUMATOID ARTHRITIS
     Dosage: ONE PEN EVERY OTHER WEEK SC
     Route: 058
     Dates: start: 20151128
  2. CYMBALATA [Concomitant]
  3. AMITRYPTYLINE [Concomitant]
     Active Substance: AMITRIPTYLINE
  4. METHOTREXATE [Concomitant]
     Active Substance: METHOTREXATE

REACTIONS (1)
  - Injection site swelling [None]

NARRATIVE: CASE EVENT DATE: 201605
